FAERS Safety Report 9257374 (Version 2)
Quarter: 2013Q2

REPORT INFORMATION
  Report Type: Spontaneous
  Country: AU (occurrence: AU)
  Receive Date: 20130426
  Receipt Date: 20130524
  Transmission Date: 20140414
  Serious: Yes (Death, Other)
  Sender: FDA-Public Use
  Company Number: AU-ROCHE-1218762

PATIENT
  Sex: Female

DRUGS (2)
  1. AVASTIN [Suspect]
     Indication: GLIOMA
     Route: 042
     Dates: start: 20130403
  2. DEXAMETHASONE [Concomitant]

REACTIONS (2)
  - Disease progression [Fatal]
  - Hepatic function abnormal [Unknown]
